FAERS Safety Report 14814585 (Version 1)
Quarter: 2018Q2

REPORT INFORMATION
  Report Type: Spontaneous
  Country: US (occurrence: US)
  Receive Date: 20180426
  Receipt Date: 20180426
  Transmission Date: 20180711
  Serious: No
  Sender: FDA-Public Use
  Company Number: US-MYLANLABS-2018M1019914

PATIENT
  Sex: Female
  Weight: 39.91 kg

DRUGS (1)
  1. GLATIRAMER [Suspect]
     Active Substance: GLATIRAMER
     Indication: PRODUCT USED FOR UNKNOWN INDICATION
     Dosage: 40 MG, SUBCUTANEOUSLY 3 TIMES A WEEK.
     Route: 058

REACTIONS (1)
  - Underdose [Unknown]
